FAERS Safety Report 4869490-4 (Version None)
Quarter: 2005Q4

REPORT INFORMATION
  Report Type: 
  Country: None (occurrence: None)
  Receive Date: 20051230
  Receipt Date: 20051221
  Transmission Date: 20060501
  Serious: Yes (Death)
  Sender: FDA-Public Use
  Company Number: US-BRISTOL-MYERS SQUIBB COMPANY-13227442

PATIENT

DRUGS (1)
  1. COUMADIN [Suspect]
     Dates: end: 20050801

REACTIONS (1)
  - DEATH [None]
